FAERS Safety Report 21823274 (Version 4)
Quarter: 2024Q2

REPORT INFORMATION
  Report Type: Report from Study
  Country: CA (occurrence: CA)
  Receive Date: 20230105
  Receipt Date: 20240517
  Transmission Date: 20240716
  Serious: Yes (Other)
  Sender: FDA-Public Use
  Company Number: CA-PFIZER INC-202300002146

PATIENT
  Age: 64 Year
  Sex: Female

DRUGS (18)
  1. METHOTREXATE SODIUM [Suspect]
     Active Substance: METHOTREXATE SODIUM
     Dosage: UNK UNK, WEEKLY
     Route: 065
  2. METHOTREXATE SODIUM [Suspect]
     Active Substance: METHOTREXATE SODIUM
     Dosage: 17.5 MG
     Route: 065
  3. METHOTREXATE SODIUM [Suspect]
     Active Substance: METHOTREXATE SODIUM
     Dosage: UNK
     Route: 058
  4. METHOTREXATE SODIUM [Suspect]
     Active Substance: METHOTREXATE SODIUM
     Dosage: 17.5 MG, WEEKLY
     Route: 058
  5. METHOTREXATE SODIUM [Suspect]
     Active Substance: METHOTREXATE SODIUM
     Dosage: 1 DF, WEEKLY
     Route: 058
  6. CYCLOSPORINE [Suspect]
     Active Substance: CYCLOSPORINE
     Dosage: UNK
     Route: 065
  7. CYCLOSPORINE [Suspect]
     Active Substance: CYCLOSPORINE
     Dosage: UNK
     Route: 058
  8. SECUKINUMAB [Suspect]
     Active Substance: SECUKINUMAB
     Indication: Psoriasis
     Dosage: 300 MG, WEEKLY
     Route: 058
  9. SECUKINUMAB [Suspect]
     Active Substance: SECUKINUMAB
     Indication: Psoriasis
     Dosage: 300 MG, MONTHLY
     Route: 058
  10. SECUKINUMAB [Suspect]
     Active Substance: SECUKINUMAB
     Dosage: 300 MG, MONTHLY
     Route: 058
  11. COSENTYX [Suspect]
     Active Substance: SECUKINUMAB
     Indication: Psoriasis
     Dosage: 300 MG, MONTHLY
     Route: 058
  12. COSENTYX [Suspect]
     Active Substance: SECUKINUMAB
     Dosage: 300 MG, MONTHLY
     Route: 058
  13. COSENTYX [Suspect]
     Active Substance: SECUKINUMAB
     Dosage: 300 MG, MONTHLY
     Route: 058
  14. COSENTYX [Suspect]
     Active Substance: SECUKINUMAB
     Indication: Psoriasis
     Dosage: 300 MG, WEEKLY
     Route: 058
  15. BETAMETHASONE DIPROPIONATE\CALCIPOTRIENE [Concomitant]
     Active Substance: BETAMETHASONE DIPROPIONATE\CALCIPOTRIENE
     Dosage: UNK
     Route: 065
  16. FOLIC ACID [Concomitant]
     Active Substance: FOLIC ACID
     Dosage: UNK
     Route: 065
  17. FOLIC ACID [Concomitant]
     Active Substance: FOLIC ACID
     Dosage: UNK
     Route: 065
  18. FOLIC ACID [Concomitant]
     Active Substance: FOLIC ACID
     Dosage: UNK, WEEKLY

REACTIONS (4)
  - Abdominal discomfort [Unknown]
  - Drug ineffective [Unknown]
  - Inappropriate schedule of product administration [Unknown]
  - Pulmonary congestion [Unknown]
